FAERS Safety Report 5847669-2 (Version None)
Quarter: 2008Q3

REPORT INFORMATION
  Report Type: 
  Country: None (occurrence: None)
  Receive Date: 20080814
  Receipt Date: 20080731
  Transmission Date: 20090109
  Serious: Yes (Hospitalization, Other)
  Sender: FDA-Public Use
  Company Number: MPS1-1000080

PATIENT
  Age: 20 Year
  Sex: Female
  Weight: 42 kg

DRUGS (2)
  1. ALDURAZYME [Suspect]
     Indication: MUCOPOLYSACCHARIDOSIS
     Dosage: 0.58 MG/KG
     Dates: start: 20050215
  2. ACETAMINOPHEN [Concomitant]

REACTIONS (1)
  - SPINAL CORD COMPRESSION [None]
